FAERS Safety Report 7657657-1 (Version None)
Quarter: 2011Q3

REPORT INFORMATION
  Report Type: 
  Country: None (occurrence: None)
  Receive Date: 20110804
  Receipt Date: 20110721
  Transmission Date: 20111222
  Serious: Yes (Hospitalization, Other)
  Sender: FDA-Public Use
  Company Number: CA-ELI_LILLY_AND_COMPANY-CA201107005639

PATIENT
  Sex: Male

DRUGS (12)
  1. RISPERIDONE [Concomitant]
  2. CARBAMAZEPINE [Concomitant]
  3. ZYPREXA ZYDIS [Suspect]
     Dosage: 5 MG, QD
  4. LORAZEPAM [Concomitant]
  5. ZYPREXA [Suspect]
     Dosage: 25 MG, EACH EVENING
  6. ZYPREXA ZYDIS [Suspect]
     Indication: BIPOLAR DISORDER
     Dosage: 25 MG, QD
  7. ZYPREXA ZYDIS [Suspect]
     Dosage: 15 MG, QD
  8. VALPROATE SODIUM [Concomitant]
  9. ZYPREXA [Suspect]
     Indication: BIPOLAR DISORDER
     Dosage: 1 DF, UNKNOWN
  10. ZYPREXA [Suspect]
     Dosage: 20 MG, SINGLE
  11. ZYPREXA [Suspect]
     Dosage: 40 MG, EACH EVENING
  12. ZYPREXA [Suspect]
     Dosage: 5 MG, SINGLE

REACTIONS (21)
  - FAECAL INCONTINENCE [None]
  - IMPAIRED HEALING [None]
  - HYPERTENSION [None]
  - DIABETIC HYPEROSMOLAR COMA [None]
  - URINARY INCONTINENCE [None]
  - OVERDOSE [None]
  - CELLULITIS GANGRENOUS [None]
  - TYPE 2 DIABETES MELLITUS [None]
  - HYPERGLYCAEMIA [None]
  - MUSCULOSKELETAL DISORDER [None]
  - DYSLIPIDAEMIA [None]
  - TYPE 1 DIABETES MELLITUS [None]
  - PANCREATITIS [None]
  - NAIL ATROPHY [None]
  - SEXUAL DYSFUNCTION [None]
  - OEDEMA PERIPHERAL [None]
  - URINARY TRACT INFECTION [None]
  - GASTROINTESTINAL HAEMORRHAGE [None]
  - BALANITIS [None]
  - LOCALISED INFECTION [None]
  - SINUS TACHYCARDIA [None]
